FAERS Safety Report 5286176-5 (Version None)
Quarter: 2007Q1

REPORT INFORMATION
  Report Type: 
  Country: None (occurrence: None)
  Receive Date: 20070116
  Receipt Date: 20061109
  Transmission Date: 20070707
  Serious: No
  Sender: FDA-Public Use
  Company Number: 2006SP003991

PATIENT
  Age: 66 Year
  Sex: Male
  Weight: 81.6475 kg

DRUGS (7)
  1. LUNESTA [Suspect]
     Indication: INSOMNIA
     Dosage: SEE IMAGE
     Route: 048
     Dates: start: 20050401, end: 20061113
  2. INTERFERON [Concomitant]
  3. REQUIP [Concomitant]
  4. VALSARTAN [Concomitant]
  5. VYTORIN [Concomitant]
  6. AMBIEN [Concomitant]
  7. HALCION [Concomitant]

REACTIONS (3)
  - INSOMNIA [None]
  - MALAISE [None]
  - SOMNOLENCE [None]
